FAERS Safety Report 6456250-6 (Version None)
Quarter: 2009Q4

REPORT INFORMATION
  Report Type: 
  Country: None (occurrence: None)
  Receive Date: 20091125
  Receipt Date: 20091117
  Transmission Date: 20100525
  Serious: Yes (Other)
  Sender: FDA-Public Use
  Company Number: US-ASTRAZENECA-2008UW27435

PATIENT
  Age: 48 Year
  Sex: Male
  Weight: 88.5 kg

DRUGS (2)
  1. SEROQUEL [Suspect]
     Indication: DEPRESSION
     Route: 048
     Dates: start: 20000101, end: 20030401
  2. RISPERDAL [Concomitant]

REACTIONS (3)
  - ARTHRITIS [None]
  - DIABETES MELLITUS [None]
  - SURGERY [None]
